FAERS Safety Report 4754595-9 (Version None)
Quarter: 2005Q3

REPORT INFORMATION
  Report Type: 
  Country: None (occurrence: None)
  Receive Date: 20050829
  Receipt Date: 20050419
  Transmission Date: 20060218
  Serious: Yes (Hospitalization)
  Sender: FDA-Public Use
  Company Number: US-MERCK-0504USA03723

PATIENT
  Age: 63 Year
  Sex: Male
  Weight: 82 kg

DRUGS (10)
  1. VIOXX [Suspect]
     Indication: PLANTAR FASCIITIS
     Route: 048
     Dates: start: 20020912, end: 20030912
  2. ASPIRIN [Concomitant]
     Route: 065
     Dates: start: 20030101
  3. COVERA-HS [Concomitant]
     Route: 065
     Dates: start: 20020124
  4. ENALAPRIL MALEATE [Concomitant]
     Route: 065
     Dates: start: 20020124
  5. LIPITOR [Concomitant]
     Route: 065
     Dates: start: 19990101
  6. NIASPAN [Concomitant]
     Route: 065
     Dates: start: 20020828
  7. PLAVIX [Concomitant]
     Route: 065
     Dates: start: 20020617
  8. TOPROL-XL [Concomitant]
     Route: 065
     Dates: start: 20020124
  9. VIAGRA [Concomitant]
     Route: 065
     Dates: start: 20020124
  10. HYDROCODONE BITARTRATE [Concomitant]
     Route: 065
     Dates: start: 20020906

REACTIONS (14)
  - ACUTE MYOCARDIAL INFARCTION [None]
  - ANGINA PECTORIS [None]
  - CHEST PAIN [None]
  - COLD SWEAT [None]
  - CORONARY ARTERY STENOSIS [None]
  - DIZZINESS [None]
  - FEELING ABNORMAL [None]
  - HYPERHIDROSIS [None]
  - ISCHAEMIC CARDIOMYOPATHY [None]
  - MITRAL VALVE INCOMPETENCE [None]
  - MYOCARDIAL INFARCTION [None]
  - STENT OCCLUSION [None]
  - THROMBOSIS [None]
  - VENTRICULAR TACHYCARDIA [None]
